FAERS Safety Report 10901527 (Version 1)
Quarter: 2015Q1

REPORT INFORMATION
  Report Type: Spontaneous
  Country: US (occurrence: None)
  Receive Date: 20150303
  Receipt Date: 20150303
  Transmission Date: 20150721
  Serious: No
  Sender: FDA-Public Use
  Company Number: None

PATIENT
  Age: 76 Year
  Sex: Male
  Weight: 70.4 kg

DRUGS (1)
  1. ALBUTEROL. [Suspect]
     Active Substance: ALBUTEROL
     Indication: UPPER RESPIRATORY TRACT INFECTION
     Route: 055
     Dates: start: 20150116, end: 20150121

REACTIONS (3)
  - Tongue oedema [None]
  - Angioedema [None]
  - Lip oedema [None]

NARRATIVE: CASE EVENT DATE: 20150121
